FAERS Safety Report 16063257 (Version 2)
Quarter: 2019Q1

REPORT INFORMATION
  Report Type: Spontaneous
  Country: PL (occurrence: PL)
  Receive Date: 20190312
  Receipt Date: 20190314
  Transmission Date: 20190418
  Serious: Yes (Hospitalization, Other)
  Sender: FDA-Public Use
  Company Number: PL-MYLANLABS-2019M1021681

PATIENT
  Age: 88 Year
  Sex: Male

DRUGS (5)
  1. CLOPIDOGREL [Suspect]
     Active Substance: CLOPIDOGREL BISULFATE
     Indication: ACUTE MYOCARDIAL INFARCTION
     Dosage: UNK
  2. HEPARIN [Concomitant]
     Active Substance: HEPARIN SODIUM
     Dosage: UNK
  3. ACETYLSALICYLIC ACID [Interacting]
     Active Substance: ASPIRIN
     Indication: ACUTE MYOCARDIAL INFARCTION
     Dosage: UNK
  4. CLOPIDOGREL [Interacting]
     Active Substance: CLOPIDOGREL BISULFATE
     Indication: ANTIPLATELET THERAPY
  5. ACETYLSALICYLIC ACID [Interacting]
     Active Substance: ASPIRIN
     Indication: ANTIPLATELET THERAPY

REACTIONS (2)
  - Labelled drug-drug interaction medication error [Unknown]
  - Drug ineffective [Unknown]
